FAERS Safety Report 6398042-2 (Version None)
Quarter: 2009Q4

REPORT INFORMATION
  Report Type: 
  Country: None (occurrence: None)
  Receive Date: 20091013
  Receipt Date: 20091006
  Transmission Date: 20100525
  Serious: Yes (Hospitalization)
  Sender: FDA-Public Use
  Company Number: FR-ROCHE-660514

PATIENT
  Age: 70 Year
  Sex: Male

DRUGS (3)
  1. CAPECITABINE [Suspect]
     Indication: GASTRIC CANCER
     Dosage: CUCLE 7, FREQUENCY TWICE DAILY FOR 14 DAYS.
     Route: 048
     Dates: start: 20090415, end: 20090908
  2. OXALIPLATIN [Suspect]
     Indication: GASTRIC CANCER
     Dosage: CYCLE 7 ON DAY 1,ROUTE REPORTED AS INTRAVENOUS NOS.
     Route: 050
     Dates: start: 20090908
  3. CETUXIMAB [Suspect]
     Indication: GASTRIC CANCER
     Dosage: CYCLE 7, ON DAY 1, 8 AND 25.ROUTE REPORTED AS INTRAVENOUS NOS.
     Route: 050
     Dates: start: 20090908

REACTIONS (2)
  - ABDOMINAL PAIN [None]
  - CHOLECYSTITIS ACUTE [None]
